FAERS Safety Report 11592905 (Version 1)
Quarter: 2015Q4

REPORT INFORMATION
  Report Type: Spontaneous
  Country: US (occurrence: None)
  Receive Date: 20151002
  Receipt Date: 20151002
  Transmission Date: 20160304
  Serious: No
  Sender: FDA-Public Use
  Company Number: None

PATIENT
  Age: 48 Year
  Sex: Female

DRUGS (1)
  1. LEVOFLOXACIN 500MG AUROBINDO [Suspect]
     Active Substance: LEVOFLOXACIN
     Indication: SINUSITIS
     Dosage: DATE OF USE  8/28, 8/29, 8/30
     Route: 048

REACTIONS (4)
  - Paraesthesia [None]
  - Tendon pain [None]
  - Myalgia [None]
  - Neuropathy peripheral [None]

NARRATIVE: CASE EVENT DATE: 20150831
